FAERS Safety Report 10360048 (Version 1)
Quarter: 2014Q3

REPORT INFORMATION
  Report Type: Spontaneous
  Country: US (occurrence: None)
  Receive Date: 20140801
  Receipt Date: 20140801
  Transmission Date: 20150326
  Serious: Yes (Death)
  Sender: FDA-Public Use
  Company Number: None

PATIENT
  Age: 61 Year
  Sex: Male
  Weight: 95 kg

DRUGS (10)
  1. NADOLOL. [Concomitant]
     Active Substance: NADOLOL
  2. SOVALDI [Suspect]
     Active Substance: SOFOSBUVIR
     Route: 048
     Dates: start: 20140407, end: 20140623
  3. FUROSEMIDE. [Concomitant]
     Active Substance: FUROSEMIDE
  4. NEOMYCIN [Concomitant]
     Active Substance: NEOMYCIN
  5. OLYSIO [Suspect]
     Active Substance: SIMEPREVIR
     Route: 048
     Dates: start: 20140407, end: 20140623
  6. XIFAXAN [Concomitant]
     Active Substance: RIFAXIMIN
  7. LACTULOSE. [Concomitant]
     Active Substance: LACTULOSE
  8. SPIRONOLACTONE. [Concomitant]
     Active Substance: SPIRONOLACTONE
  9. TOPAMAX [Concomitant]
     Active Substance: TOPIRAMATE
  10. TAMSULOSIN [Concomitant]
     Active Substance: TAMSULOSIN

REACTIONS (5)
  - Drug dose omission [None]
  - Confusional state [None]
  - Tremor [None]
  - Treatment noncompliance [None]
  - Memory impairment [None]

NARRATIVE: CASE EVENT DATE: 20140623
